FAERS Safety Report 4676289-0 (Version None)
Quarter: 2005Q2

REPORT INFORMATION
  Report Type: 
  Country: None (occurrence: None)
  Receive Date: 20050527
  Receipt Date: 20050215
  Transmission Date: 20051028
  Serious: No
  Sender: FDA-Public Use
  Company Number: US-GLAXOSMITHKLINE-A0545719A

PATIENT
  Age: 39 Year
  Sex: Male
  Weight: 69.1 kg

DRUGS (2)
  1. WELLBUTRIN XL [Suspect]
     Indication: DEPRESSION
     Route: 048
     Dates: start: 20040819, end: 20041101
  2. ULTRAM [Concomitant]
     Indication: NECK PAIN
     Dosage: 2TAB THREE TIMES PER DAY
     Route: 048
     Dates: start: 20040901, end: 20040909

REACTIONS (1)
  - FEELING JITTERY [None]
